FAERS Safety Report 4555596-6 (Version None)
Quarter: 2005Q1

REPORT INFORMATION
  Report Type: 
  Country: None (occurrence: None)
  Receive Date: 20050118
  Receipt Date: 20050118
  Transmission Date: 20050727
  Serious: Yes (Death)
  Sender: FDA-Public Use
  Company Number: None

PATIENT
  Age: 83 Year

DRUGS (1)
  1. TISSUE PLASMINOGEN [Suspect]
     Indication: THROMBOLYSIS

REACTIONS (1)
  - HAEMORRHAGIC STROKE [None]
